FAERS Safety Report 10066800 (Version 1)
Quarter: 2014Q2

REPORT INFORMATION
  Report Type: Spontaneous
  Country: US (occurrence: US)
  Receive Date: 20140408
  Receipt Date: 20140408
  Transmission Date: 20141212
  Serious: Yes (Other)
  Sender: FDA-Public Use
  Company Number: US-RB-065515-14

PATIENT
  Age: 30 Year
  Sex: Female

DRUGS (7)
  1. SUBOXONE FILM [Suspect]
     Indication: PAIN
     Dosage: SUBOXONE FILM; CUT THE FILM INTO PIECES AND TOOK 1 TO 2 MG FIRST, AND LATER 4 MG TWICE DAILY
     Route: 060
     Dates: start: 2011, end: 2012
  2. BUPRENORPHINE GENERIC [Suspect]
     Indication: PAIN
     Dosage: DAILY DOSE: 8 TO 16 MG
     Route: 060
     Dates: start: 2012, end: 201301
  3. BUPRENORPHINE GENERIC [Suspect]
     Dosage: DAILY DOSE: 8 TO 16 MG
     Route: 060
     Dates: start: 2013
  4. GABAPENTIN [Concomitant]
     Indication: NERVE INJURY
     Dosage: DOSING DETAILS UNKNOWN
     Route: 048
  5. VALIUM [Concomitant]
     Indication: ANXIETY
     Dosage: DOSING DETAILS UNKNOWN
     Route: 048
  6. VALIUM [Concomitant]
     Indication: CONVULSION
     Dosage: DOSING DETAILS UNKNOWN
     Route: 048
  7. BACLOFEN [Concomitant]
     Indication: MUSCLE SPASMS
     Dosage: DOSING DETAILS UNKNOWN
     Route: 048

REACTIONS (7)
  - Off label use [Not Recovered/Not Resolved]
  - Wrong technique in drug usage process [Recovered/Resolved]
  - Nausea [Recovered/Resolved]
  - Motion sickness [Recovered/Resolved]
  - Fall [Recovered/Resolved]
  - Wrist fracture [Recovered/Resolved]
  - Rotator cuff syndrome [Recovered/Resolved]
